FAERS Safety Report 25771009 (Version 1)
Quarter: 2025Q3

REPORT INFORMATION
  Report Type: Spontaneous
  Country: BR (occurrence: BR)
  Receive Date: 20250908
  Receipt Date: 20250908
  Transmission Date: 20251020
  Serious: Yes (Death)
  Sender: ABBVIE
  Company Number: BR-ABBVIE-6448207

PATIENT
  Age: 86 Year

DRUGS (2)
  1. VENCLEXTA [Suspect]
     Active Substance: VENETOCLAX
     Indication: Chronic lymphocytic leukaemia
     Route: 048
  2. OBINUTUZUMAB [Suspect]
     Active Substance: OBINUTUZUMAB
     Indication: Chronic lymphocytic leukaemia
     Route: 065

REACTIONS (2)
  - Respiratory tract infection [Fatal]
  - Immunosuppression [Unknown]
